FAERS Safety Report 12924280 (Version 1)
Quarter: 2016Q4

REPORT INFORMATION
  Report Type: Report from Study
  Country: AR (occurrence: AR)
  Receive Date: 20161109
  Receipt Date: 20161109
  Transmission Date: 20170207
  Serious: Yes (Other)
  Sender: FDA-Public Use
  Company Number: PHHY2016AR145808

PATIENT
  Age: 82 Year
  Sex: Female

DRUGS (2)
  1. ONBREZ BREEZHALER [Suspect]
     Active Substance: INDACATEROL
     Indication: ASTHMA
     Dosage: 150 MG, QD
     Route: 065
     Dates: start: 201609, end: 20161009
  2. FREVIA [Concomitant]
     Active Substance: BUDESONIDE\FORMOTEROL
     Indication: PRODUCT USED FOR UNKNOWN INDICATION
     Dosage: IN THE MORNING
     Route: 065

REACTIONS (19)
  - Asthma [Unknown]
  - Nervousness [Unknown]
  - Headache [Not Recovered/Not Resolved]
  - Gastrointestinal haemorrhage [Not Recovered/Not Resolved]
  - Dysphonia [Unknown]
  - Back pain [Unknown]
  - Snoring [Unknown]
  - Faeces discoloured [Not Recovered/Not Resolved]
  - Immune system disorder [Not Recovered/Not Resolved]
  - Lung disorder [Unknown]
  - Sneezing [Unknown]
  - Feeling abnormal [Unknown]
  - Pain in extremity [Not Recovered/Not Resolved]
  - Nasopharyngitis [Not Recovered/Not Resolved]
  - Dizziness [Not Recovered/Not Resolved]
  - Antinuclear antibody positive [Not Recovered/Not Resolved]
  - Bronchospasm [Unknown]
  - Skin discolouration [Unknown]
  - Off label use [Unknown]

NARRATIVE: CASE EVENT DATE: 201609
